FAERS Safety Report 8515725-6 (Version None)
Quarter: 2012Q3

REPORT INFORMATION
  Report Type: 
  Country: None (occurrence: None)
  Receive Date: 20120717
  Receipt Date: 20120713
  Transmission Date: 20120928
  Serious: Yes (Other)
  Sender: FDA-Public Use
  Company Number: PHHY2012BR039080

PATIENT
  Sex: Female
  Weight: 68 kg

DRUGS (8)
  1. APRESOLINA [Concomitant]
     Indication: HYPERTENSION
     Dosage: 50 MG, TID
     Route: 048
     Dates: start: 20110901
  2. MANIDIPINE HYDROCHLORIDE [Concomitant]
     Indication: HYPERTENSION
     Dosage: 10 MG DAILY
     Route: 048
     Dates: start: 20110901
  3. ALLOPURINOL [Concomitant]
     Indication: HYPERTENSION
     Dosage: 300 MG DAILY
     Route: 048
     Dates: start: 20110901
  4. AMITRIPTYLINE HYDROCHLORIDE [Concomitant]
     Indication: PAIN
  5. SUSTRATE [Concomitant]
     Indication: HYPERTENSION
     Dosage: 2 DF (10 MG BID)
     Route: 048
     Dates: start: 20110901
  6. ENABLEX [Suspect]
     Indication: URINARY INCONTINENCE
     Dosage: 15 MG (1 TABLET) A DAY
     Route: 048
     Dates: start: 20111201
  7. AMITRIPTYLINE HYDROCHLORIDE [Concomitant]
     Indication: ANXIETY
     Dosage: 25 MG A DAY
     Route: 048
     Dates: start: 20120201
  8. COUMADIN [Concomitant]
     Indication: THROMBOSIS
     Dosage: 125 MG TABLET HALF A DAY
     Route: 048
     Dates: start: 20111201

REACTIONS (3)
  - HYPERTONIC BLADDER [None]
  - URINARY TRACT INFECTION [None]
  - LYMPHOMA [None]
